FAERS Safety Report 20043001 (Version 1)
Quarter: 2021Q4

REPORT INFORMATION
  Report Type: Other
  Country: BR (occurrence: None)
  Receive Date: 20211108
  Receipt Date: 20211108
  Transmission Date: 20220304
  Serious: Yes (Hospitalization)
  Sender: FDA-Public Use
  Company Number: BR-ROCHE-2950687

PATIENT
  Age: 68 Year
  Sex: Male

DRUGS (16)
  1. RITUXIMAB [Suspect]
     Active Substance: RITUXIMAB
     Indication: Chronic lymphocytic leukaemia
     Route: 065
  2. CHLORAMBUCIL [Suspect]
     Active Substance: CHLORAMBUCIL
     Indication: Chronic lymphocytic leukaemia
     Route: 065
  3. PREDNISONE [Suspect]
     Active Substance: PREDNISONE
     Indication: Chronic lymphocytic leukaemia
     Route: 065
  4. CYCLOPHOSPHAMIDE [Suspect]
     Active Substance: CYCLOPHOSPHAMIDE
     Indication: Chronic lymphocytic leukaemia
     Route: 065
  5. VINCRISTINE [Suspect]
     Active Substance: VINCRISTINE
     Indication: Chronic lymphocytic leukaemia
     Route: 065
  6. DEFERASIROX [Concomitant]
     Active Substance: DEFERASIROX
  7. IBRUTINIB [Concomitant]
     Active Substance: IBRUTINIB
  8. IBUPROFEN [Concomitant]
     Active Substance: IBUPROFEN
  9. CLAVULANATE POTASSIUM [Concomitant]
     Active Substance: CLAVULANATE POTASSIUM
  10. AZITHROMYCIN [Concomitant]
     Active Substance: AZITHROMYCIN
  11. CEFEPIME [Concomitant]
     Active Substance: CEFEPIME HYDROCHLORIDE
  12. CLARITHROMYCIN [Concomitant]
     Active Substance: CLARITHROMYCIN
  13. FILGRASTIM [Concomitant]
     Active Substance: FILGRASTIM
  14. PIPERACILLIN AND TAZOBACTAM [Concomitant]
     Active Substance: PIPERACILLIN SODIUM\TAZOBACTAM SODIUM
  15. MEROPENEM [Concomitant]
     Active Substance: MEROPENEM
  16. VANCOMYCIN [Concomitant]
     Active Substance: VANCOMYCIN

REACTIONS (3)
  - Pneumonia [Recovered/Resolved]
  - Pneumonia bacterial [Recovered/Resolved]
  - COVID-19 [Unknown]
